FAERS Safety Report 4906753-8 (Version None)
Quarter: 2006Q1

REPORT INFORMATION
  Report Type: 
  Country: None (occurrence: None)
  Receive Date: 20060209
  Receipt Date: 20060124
  Transmission Date: 20060701
  Serious: Yes (Hospitalization)
  Sender: FDA-Public Use
  Company Number: US-ROCHE-434901

PATIENT
  Age: 47 Year
  Sex: Male
  Weight: 109 kg

DRUGS (2)
  1. CAPECITABINE [Suspect]
     Route: 048
     Dates: start: 20050911, end: 20051019
  2. OXALIPLATIN [Suspect]
     Dosage: OVER 2 HOURS - DAYS 1, 8, 15, 22, 29
     Route: 042
     Dates: start: 20050912, end: 20051010

REACTIONS (13)
  - ABDOMINAL DISTENSION [None]
  - ABDOMINAL PAIN [None]
  - BACTERIAL INFECTION [None]
  - BLOOD CREATININE INCREASED [None]
  - BLOOD UREA INCREASED [None]
  - DYSPNOEA [None]
  - FATIGUE [None]
  - HAEMOGLOBIN DECREASED [None]
  - HYDRONEPHROSIS [None]
  - INFECTION [None]
  - NASAL CONGESTION [None]
  - PRODUCTIVE COUGH [None]
  - SPUTUM DISCOLOURED [None]
